FAERS Safety Report 6750360-1 (Version None)
Quarter: 2010Q2

REPORT INFORMATION
  Report Type: 
  Country: None (occurrence: None)
  Receive Date: 20100601
  Receipt Date: 20100525
  Transmission Date: 20101027
  Serious: Yes (Other)
  Sender: FDA-Public Use
  Company Number: DE-WYE-G03580409

PATIENT
  Sex: Female

DRUGS (2)
  1. TREVILOR RETARD [Suspect]
     Indication: DEPRESSION
     Route: 048
     Dates: start: 20071101, end: 20090101
  2. TREVILOR RETARD [Suspect]
     Dosage: REDUCED TO 75 MG PER DAY
     Route: 048
     Dates: start: 20090101, end: 20091001

REACTIONS (3)
  - ANAEMIA [None]
  - ARRESTED LABOUR [None]
  - DRUG EXPOSURE DURING PREGNANCY [None]
